FAERS Safety Report 7277283-6 (Version None)
Quarter: 2010Q4

REPORT INFORMATION
  Report Type: 
  Country: None (occurrence: None)
  Receive Date: 20101201
  Receipt Date: 20091204
  Transmission Date: 20110411
  Serious: Yes (Other)
  Sender: FDA-Public Use
  Company Number: 301684

PATIENT
  Age: 69 Year
  Sex: Female
  Weight: 129.3 kg

DRUGS (4)
  1. LEVEMIR [Suspect]
     Indication: TYPE 2 DIABETES MELLITUS
     Dosage: 60 UNITS, SINGLE, SUBCUTANEOUS, 60 UNITS, SINGLE, SUBCUTANEOUS
     Route: 058
     Dates: start: 20091101, end: 20091101
  2. LEVEMIR [Suspect]
     Indication: TYPE 2 DIABETES MELLITUS
     Dosage: 60 UNITS, SINGLE, SUBCUTANEOUS, 60 UNITS, SINGLE, SUBCUTANEOUS
     Route: 058
     Dates: start: 20080101
  3. NOVOLOG [Suspect]
     Indication: TYPE 2 DIABETES MELLITUS
     Dosage: 30 U BREAKFAST, 25 UNITS LUNCH, 25 UNITS DINNER, SUBCUTANEOUS, 20 U SINGLE, SUBCUTANEOUS
     Route: 058
     Dates: start: 20091101, end: 20091101
  4. NOVOLOG [Suspect]
     Indication: TYPE 2 DIABETES MELLITUS
     Dosage: 30 U BREAKFAST, 25 UNITS LUNCH, 25 UNITS DINNER, SUBCUTANEOUS, 20 U SINGLE, SUBCUTANEOUS
     Route: 058
     Dates: start: 20080101

REACTIONS (2)
  - BLOOD GLUCOSE INCREASED [None]
  - WRONG DRUG ADMINISTERED [None]
